FAERS Safety Report 8908387 (Version 1)
Quarter: 2012Q4

REPORT INFORMATION
  Report Type: 
  Country: US (occurrence: US)
  Receive Date: 20121113
  Receipt Date: 20121113
  Transmission Date: 20130627
  Serious: No
  Sender: FDA-Public Use
  Company Number: US-AMGEN-USASP2012034305

PATIENT
  Sex: Male

DRUGS (10)
  1. ARANESP [Suspect]
     Indication: MYELODYSPLASTIC SYNDROME
     Dosage: 500 mug, q2wk
  2. ARANESP [Suspect]
     Indication: RENAL FAILURE CHRONIC
  3. NORVASC [Concomitant]
  4. CARDURA [Concomitant]
  5. GLUCOSAMINE [Concomitant]
  6. HYDROCHLOROTHIAZIDE [Concomitant]
  7. MULTIVITAMIN                       /06015201/ [Concomitant]
  8. PRILOSEC                           /00661201/ [Concomitant]
  9. RAMIPRIL [Concomitant]
  10. CALCIUM [Concomitant]

REACTIONS (1)
  - Iron deficiency [Not Recovered/Not Resolved]
